FAERS Safety Report 11643334 (Version 1)
Quarter: 2015Q4

REPORT INFORMATION
  Report Type: Spontaneous
  Country: IL (occurrence: IL)
  Receive Date: 20151020
  Receipt Date: 20151020
  Transmission Date: 20160304
  Serious: Yes (Other)
  Sender: FDA-Public Use
  Company Number: IL-ROCHE-1648345

PATIENT
  Age: 87 Year
  Sex: Male

DRUGS (1)
  1. LUCENTIS [Suspect]
     Active Substance: RANIBIZUMAB
     Indication: AGE-RELATED MACULAR DEGENERATION
     Dosage: DOSE: 0.5
     Route: 065

REACTIONS (2)
  - Choroidal neovascularisation [Recovered/Resolved]
  - Retinal haemorrhage [Recovered/Resolved]
